FAERS Safety Report 18199459 (Version 1)
Quarter: 2020Q3

REPORT INFORMATION
  Report Type: Other
  Country: CA (occurrence: CA)
  Receive Date: 20200826
  Receipt Date: 20200826
  Transmission Date: 20201103
  Serious: Yes (Hospitalization, Other)
  Sender: FDA-Public Use
  Company Number: CA-COVIS PHARMA B.V.-2020COV00396

PATIENT
  Age: 60 Year
  Sex: Female

DRUGS (15)
  1. CEPHALEXIN. [Suspect]
     Active Substance: CEPHALEXIN
  2. ESTRADIOL. [Concomitant]
     Active Substance: ESTRADIOL
  3. MESALAZINE [Concomitant]
     Active Substance: MESALAMINE
  4. PREDNISONE. [Concomitant]
     Active Substance: PREDNISONE
  5. BUDESONIDE. [Concomitant]
     Active Substance: BUDESONIDE
  6. CYANOCOBALAMIN. [Concomitant]
     Active Substance: CYANOCOBALAMIN
  7. FOLIC ACID. [Concomitant]
     Active Substance: FOLIC ACID
  8. WARFARIN [Concomitant]
     Active Substance: WARFARIN
  9. TRIMEBUTINE [Concomitant]
     Active Substance: TRIMEBUTINE
  10. REMICADE [Suspect]
     Active Substance: INFLIXIMAB
  11. TELMISARTAN. [Concomitant]
     Active Substance: TELMISARTAN
  12. CODEINE [Suspect]
     Active Substance: CODEINE
  13. METHOTREXATE. [Suspect]
     Active Substance: METHOTREXATE
  14. PROMETRIUM [Concomitant]
     Active Substance: PROGESTERONE
  15. OMNARIS [Suspect]
     Active Substance: CICLESONIDE
     Indication: SINUSITIS

REACTIONS (16)
  - Subclavian vein thrombosis [Not Recovered/Not Resolved]
  - Multiple sclerosis [Not Recovered/Not Resolved]
  - Pruritus [Not Recovered/Not Resolved]
  - Chills [Not Recovered/Not Resolved]
  - Lethargy [Not Recovered/Not Resolved]
  - Neurological symptom [Not Recovered/Not Resolved]
  - Rash [Not Recovered/Not Resolved]
  - Abscess intestinal [Not Recovered/Not Resolved]
  - Product use in unapproved indication [Not Recovered/Not Resolved]
  - Crohn^s disease [Not Recovered/Not Resolved]
  - Heart rate increased [Not Recovered/Not Resolved]
  - Migraine [Not Recovered/Not Resolved]
  - Dyspnoea [Not Recovered/Not Resolved]
  - Vomiting [Not Recovered/Not Resolved]
  - Chronic sinusitis [Not Recovered/Not Resolved]
  - Hypertensive crisis [Not Recovered/Not Resolved]
